FAERS Safety Report 8322203-6 (Version None)
Quarter: 2012Q2

REPORT INFORMATION
  Report Type: 
  Country: None (occurrence: None)
  Receive Date: 20120430
  Receipt Date: 20040720
  Transmission Date: 20120825
  Serious: Yes (Death, Life-Threatening)
  Sender: FDA-Public Use
  Company Number: FR-ROCHE-374781

PATIENT
  Sex: Female
  Weight: 45 kg

DRUGS (3)
  1. ARIMIDEX [Concomitant]
     Indication: BREAST CANCER
     Route: 048
  2. PREDNISOLONE SODIUM [Concomitant]
     Indication: DYSPNOEA
     Route: 048
  3. XELODA [Suspect]
     Indication: BREAST CANCER METASTATIC
     Route: 048
     Dates: start: 20040703, end: 20040711

REACTIONS (3)
  - MOUTH ULCERATION [None]
  - PYREXIA [None]
  - FEBRILE BONE MARROW APLASIA [None]
